FAERS Safety Report 13545211 (Version 3)
Quarter: 2017Q3

REPORT INFORMATION
  Report Type: Report from Study
  Country: NL (occurrence: NL)
  Receive Date: 20170515
  Receipt Date: 20170706
  Transmission Date: 20171127
  Serious: Yes (Hospitalization)
  Sender: FDA-Public Use
  Company Number: NL-OTSUKA-2017_010445

PATIENT
  Age: 76 Year
  Sex: Male

DRUGS (4)
  1. DECITABINE. [Suspect]
     Active Substance: DECITABINE
     Indication: MYELODYSPLASTIC SYNDROME
     Dosage: 36 MG, IN 1 DAY
     Route: 042
     Dates: start: 20170319
  2. DECITABINE. [Suspect]
     Active Substance: DECITABINE
     Dosage: 36 MG, IN 1 DAY
     Route: 042
     Dates: start: 20170421, end: 20170425
  3. IBRUTINIB [Suspect]
     Active Substance: IBRUTINIB
     Indication: MYELODYSPLASTIC SYNDROME
     Dosage: 560 MG, IN 1 DAY
     Route: 048
     Dates: start: 20170329, end: 20170404
  4. IBRUTINIB [Suspect]
     Active Substance: IBRUTINIB
     Dosage: 140 MG, IN 1 DAY
     Route: 048
     Dates: start: 20170405, end: 20170411

REACTIONS (3)
  - Febrile neutropenia [Recovered/Resolved]
  - Mucosal infection [Recovered/Resolved]
  - Malaise [Not Recovered/Not Resolved]

NARRATIVE: CASE EVENT DATE: 20170412
